FAERS Safety Report 9897810 (Version 1)
Quarter: 2014Q1

REPORT INFORMATION
  Report Type: Report from Study
  Country: US (occurrence: US)
  Receive Date: 20140214
  Receipt Date: 20140214
  Transmission Date: 20141002
  Serious: Yes (Other)
  Sender: FDA-Public Use
  Company Number: US-BAYER-2014-020572

PATIENT
  Age: 29 Year
  Sex: Female

DRUGS (3)
  1. BETASERON [Suspect]
     Dosage: UNK
     Dates: start: 20080422, end: 20091201
  2. BETASERON [Suspect]
     Dosage: UNK
     Dates: start: 20100920, end: 20130301
  3. BETASERON [Suspect]
     Dosage: 8 MIU, QOD
     Route: 058
     Dates: start: 20131001, end: 20140110

REACTIONS (3)
  - Multiple sclerosis relapse [Recovered/Resolved]
  - Caesarean section [Recovered/Resolved]
  - Maternal exposure during pregnancy [Recovered/Resolved]
